FAERS Safety Report 9537401 (Version 2)
Quarter: 2013Q4

REPORT INFORMATION
  Report Type: Report from Study
  Country: NL (occurrence: NL)
  Receive Date: 20130919
  Receipt Date: 20131015
  Transmission Date: 20140711
  Serious: Yes (Hospitalization)
  Sender: FDA-Public Use
  Company Number: PHHY2013NL103896

PATIENT
  Age: 63 Year
  Sex: Male

DRUGS (13)
  1. ZOMETA [Suspect]
     Indication: PROSTATE CANCER METASTATIC
     Dosage: 4 MG/100 ML, ONCE EVERY 4 WEEKS
  2. ZOMETA [Suspect]
     Dosage: 4 MG/100 ML, ONCE EVERY 4 WEEKS
     Dates: start: 20130819
  3. ZOMETA [Suspect]
     Dosage: 4 MG/100 ML, ONCE EVERY 4 WEEKS
     Dates: start: 20130916
  4. ZOMETA [Suspect]
     Dosage: 4 MG/100 ML, ONCE EVERY 4 WEEKS
     Dates: start: 20131014
  5. ATORVASTATIN [Concomitant]
     Dosage: 40 MG, ONCE DAILY TWO
  6. PREDNISOLONE [Concomitant]
     Dosage: 5 MG, ONCE DAILY TWO
  7. PARACETAMOL [Concomitant]
     Dosage: UNK FOUR TIMES A DAY
  8. PLAVIX [Concomitant]
     Dosage: 75 MG, ONCE DAILY ONE
  9. ACETYLSALICYLIC ACID [Concomitant]
     Dosage: 80 MG, ONCE DAILY ONE
  10. FOLIC ACID [Concomitant]
     Dosage: 5 MG, ONCE DAILY ONE
  11. BISOPROLOL FUMARATE [Concomitant]
     Dosage: 2.5 MG, ONCE DAILY ONE
  12. AMLODIPN [Concomitant]
     Dosage: 5 MG, ONCE DAILY ONE
  13. COVERSYL                                /BEL/ [Concomitant]
     Dosage: 10/2.2.5 MG, ONCE DAILY ONE

REACTIONS (4)
  - Myocardial infarction [Recovering/Resolving]
  - Nausea [Recovered/Resolved]
  - Dizziness [Recovered/Resolved]
  - Headache [Recovered/Resolved]
